FAERS Safety Report 19951702 (Version 1)
Quarter: 2021Q4

REPORT INFORMATION
  Report Type: Spontaneous
  Country: US (occurrence: US)
  Receive Date: 20211013
  Receipt Date: 20211013
  Transmission Date: 20220304
  Serious: No
  Sender: FDA-Public Use
  Company Number: US-PFIZER INC-2017546985

PATIENT
  Age: 39 Year
  Sex: Female

DRUGS (2)
  1. IBRANCE [Suspect]
     Active Substance: PALBOCICLIB
     Indication: Prophylaxis
     Dosage: 125 MG
     Dates: start: 20210524
  2. IBRANCE [Suspect]
     Active Substance: PALBOCICLIB
     Dosage: 100 MG
     Dates: start: 20210610

REACTIONS (6)
  - Nausea [Unknown]
  - Faeces soft [Unknown]
  - White blood cell count decreased [Unknown]
  - Dysphonia [Unknown]
  - Eructation [Unknown]
  - Fatigue [Unknown]
